FAERS Safety Report 16264808 (Version 1)
Quarter: 2019Q2

REPORT INFORMATION
  Report Type: Spontaneous
  Country: US (occurrence: US)
  Receive Date: 20190328
  Receipt Date: 20190328
  Transmission Date: 20190711
  Serious: No
  Sender: FDA-Public Use
  Company Number: None

PATIENT
  Age: 59 Year
  Sex: Female

DRUGS (1)
  1. COSENTYX [Suspect]
     Active Substance: SECUKINUMAB
     Indication: PSORIASIS
     Dosage: INJECT 300MG (2 PENS) SUBCUTANEOUSLY ONCE A WEEK  FOR 5 WEEKS AS DIRECTED
     Route: 058
     Dates: start: 201811

REACTIONS (3)
  - Gingival abscess [None]
  - Urticaria [None]
  - Pruritus [None]
